FAERS Safety Report 18699625 (Version 1)
Quarter: 2021Q1

REPORT INFORMATION
  Report Type: Spontaneous
  Country: JP (occurrence: JP)
  Receive Date: 20210105
  Receipt Date: 20210105
  Transmission Date: 20210419
  Serious: Yes (Other)
  Sender: FDA-Public Use
  Company Number: JP-TAKEDA-2020TUS053742

PATIENT
  Age: 20 Year

DRUGS (4)
  1. 503 (GUANFACINE HYDROCHLORIDE) [Suspect]
     Active Substance: GUANFACINE HYDROCHLORIDE
     Dosage: 3 MILLIGRAM, QD
     Route: 065
     Dates: start: 20201113
  2. 503 (GUANFACINE HYDROCHLORIDE) [Suspect]
     Active Substance: GUANFACINE HYDROCHLORIDE
     Indication: PRODUCT USED FOR UNKNOWN INDICATION
     Dosage: 1 MILLIGRAM, QD
     Route: 065
  3. ALPRAZOLAM. [Suspect]
     Active Substance: ALPRAZOLAM
     Indication: PRODUCT USED FOR UNKNOWN INDICATION
     Dosage: UNK UNK, PRN
     Route: 065
  4. 503 (GUANFACINE HYDROCHLORIDE) [Suspect]
     Active Substance: GUANFACINE HYDROCHLORIDE
     Dosage: 2 MILLIGRAM
     Route: 065
     Dates: start: 20201030

REACTIONS (4)
  - Auditory disorder [Unknown]
  - Deafness [Unknown]
  - Dizziness [Unknown]
  - Hypoacusis [Unknown]
